FAERS Safety Report 12052089 (Version 2)
Quarter: 2016Q1

REPORT INFORMATION
  Report Type: Spontaneous
  Country: US (occurrence: US)
  Receive Date: 20160209
  Receipt Date: 20160216
  Transmission Date: 20160526
  Serious: Yes (Hospitalization)
  Sender: FDA-Public Use
  Company Number: US-SA-2016SA018841

PATIENT
  Age: 70 Year
  Sex: Male

DRUGS (2)
  1. TOUJEO [Suspect]
     Active Substance: INSULIN GLARGINE
     Indication: TYPE 2 DIABETES MELLITUS
     Dosage: DOSE:50 UNIT(S)
     Route: 065
     Dates: start: 20160104
  2. SOLOSTAR [Suspect]
     Active Substance: DEVICE
     Indication: TYPE 2 DIABETES MELLITUS
     Dates: start: 20160104

REACTIONS (7)
  - Blood pressure decreased [Unknown]
  - Disorganised speech [Unknown]
  - Dysstasia [Unknown]
  - Injury associated with device [Unknown]
  - Blood glucose increased [Recovered/Resolved]
  - Therapeutic response unexpected [Unknown]
  - Sepsis [Unknown]

NARRATIVE: CASE EVENT DATE: 20160109
